FAERS Safety Report 8246547-1 (Version None)
Quarter: 2012Q1

REPORT INFORMATION
  Report Type: 
  Country: None (occurrence: None)
  Receive Date: 20120330
  Receipt Date: 20120320
  Transmission Date: 20120608
  Serious: Yes (Hospitalization)
  Sender: FDA-Public Use
  Company Number: FR-BRISTOL-MYERS SQUIBB COMPANY-16468183

PATIENT
  Age: 68 Year
  Sex: Female

DRUGS (12)
  1. HALDOL [Concomitant]
     Dosage: 1 DF=2MG/ML,ORAL SOLN.FREQUENCY-15DROPS DAILY,5 DROPS IN MORNG,LUNCHTIME AND IN THE EVEG
     Route: 048
     Dates: end: 20111107
  2. OXAZEPAM [Concomitant]
     Dosage: 0.5 TAB IN MRNG,LUNCHTIME,1 TAB IN EVG
     Route: 048
     Dates: end: 20111107
  3. VASTAREL [Concomitant]
     Route: 048
     Dates: end: 20111107
  4. GLUCOPHAGE [Suspect]
     Dosage: FORMULATION-FILM COATED TABS,TAKEN ONE IN MRNG AND EVG
     Route: 048
     Dates: end: 20111107
  5. AMARYL [Concomitant]
     Route: 048
     Dates: end: 20111107
  6. ROCEPHIN [Concomitant]
     Route: 048
     Dates: start: 20111028, end: 20111101
  7. LITHIUM CARBONATE [Suspect]
     Indication: BIPOLAR DISORDER
     Dosage: TABS,TAKEN ONE IN MORNING AND EVENING.
     Route: 048
     Dates: end: 20111107
  8. ACETAMINOPHEN [Suspect]
     Route: 048
     Dates: end: 20111107
  9. KETOPROFEN [Suspect]
     Dosage: TABS,ONE IN MRNG AND EVG
     Route: 048
     Dates: end: 20111107
  10. PANTOPRAZOLE [Concomitant]
     Dosage: ENTERIC COATED TAB
     Route: 048
     Dates: end: 20111107
  11. LEVOTHYROXINE SODIUM [Concomitant]
     Dosage: TABS
     Route: 048
     Dates: end: 20111107
  12. POLYETHYLENE GLYCOL [Suspect]
     Dosage: 1 DF=4000UNITS NOS
     Route: 048
     Dates: end: 20111029

REACTIONS (2)
  - RENAL FAILURE ACUTE [None]
  - METABOLIC ACIDOSIS [None]
